FAERS Safety Report 7351325-1 (Version None)
Quarter: 2011Q1

REPORT INFORMATION
  Report Type: 
  Country: None (occurrence: None)
  Receive Date: 20110314
  Receipt Date: 20110228
  Transmission Date: 20110831
  Serious: Yes (Hospitalization, Other)
  Sender: FDA-Public Use
  Company Number: PHHO2011JP04188

PATIENT

DRUGS (17)
  1. MAINTATE [Concomitant]
  2. ALOSITOL [Concomitant]
  3. BLINDED ALISKIREN [Suspect]
     Indication: CARDIAC FAILURE
     Dosage: CODE NOT BROKEN
     Route: 048
     Dates: start: 20100412, end: 20110226
  4. WARFARIN SODIUM [Concomitant]
  5. METFORMIN HCL [Concomitant]
  6. BLINDED ENALAPRIL [Suspect]
     Indication: CARDIAC FAILURE
     Dosage: CODE NOT BROKEN
     Route: 048
     Dates: start: 20100412, end: 20110226
  7. COMPARATOR ENALAPRIL [Suspect]
     Indication: CARDIAC FAILURE
     Dosage: UNK
     Route: 048
     Dates: start: 20100119, end: 20100411
  8. ASPIRIN [Concomitant]
  9. MEVALOTIN [Concomitant]
  10. MUCOSOLVAN [Concomitant]
  11. BLINDED NO TREATMENT RECEIVED [Suspect]
     Indication: CARDIAC FAILURE
     Dosage: CODE NOT BROKEN
     Route: 048
     Dates: start: 20100412, end: 20110226
  12. MEDICON (DEXTROMETHORPHAN HYDROBROMIDE) [Concomitant]
  13. ALISKIREN [Suspect]
     Indication: CARDIAC FAILURE
     Dosage: UNK
     Route: 048
     Dates: start: 20100119, end: 20100411
  14. CALBLOCK [Concomitant]
  15. THEOLONG [Concomitant]
  16. CLARITH [Concomitant]
  17. LASIX [Concomitant]

REACTIONS (12)
  - BULIMIA NERVOSA [None]
  - OBESITY [None]
  - NASOPHARYNGITIS [None]
  - MOBILITY DECREASED [None]
  - DYSPNOEA [None]
  - URINE OUTPUT DECREASED [None]
  - DIABETES MELLITUS INADEQUATE CONTROL [None]
  - WEIGHT INCREASED [None]
  - GENERALISED OEDEMA [None]
  - ABDOMINAL DISTENSION [None]
  - SLEEP APNOEA SYNDROME [None]
  - CARDIAC FAILURE [None]
